FAERS Safety Report 18688139 (Version 1)
Quarter: 2020Q4

REPORT INFORMATION
  Report Type: Spontaneous
  Country: FR (occurrence: FR)
  Receive Date: 20201231
  Receipt Date: 20201231
  Transmission Date: 20210114
  Serious: Yes (Hospitalization, Other)
  Sender: FDA-Public Use
  Company Number: FR-SA-2020SA376111

PATIENT

DRUGS (19)
  1. EZETIMIBE. [Suspect]
     Active Substance: EZETIMIBE
     Indication: DYSLIPIDAEMIA
     Dosage: 1 DF, QD
     Route: 048
     Dates: start: 20201117, end: 20201127
  2. FUMAFER [Suspect]
     Active Substance: FERROUS FUMARATE
     Indication: VITAMIN SUPPLEMENTATION
     Dosage: 1 DF, QD
     Route: 048
     Dates: start: 20201117, end: 20201127
  3. CALCIUM CARBONATE/COLECALCIFEROL [Suspect]
     Active Substance: CALCIUM CARBONATE\CHOLECALCIFEROL
     Indication: VITAMIN SUPPLEMENTATION
     Dosage: 2 DF, QD
     Route: 048
     Dates: end: 20201127
  4. LERCANIDIPINE HYDROCHLORIDE [Suspect]
     Active Substance: LERCANIDIPINE HYDROCHLORIDE
     Indication: HYPERTENSION
     Dosage: 10 MG, QD
     Route: 048
     Dates: end: 20201127
  5. ATORVASTATIN [Concomitant]
     Active Substance: ATORVASTATIN
  6. BRINZOLAMIDE [Concomitant]
     Active Substance: BRINZOLAMIDE
  7. REPAGLINIDE. [Suspect]
     Active Substance: REPAGLINIDE
     Indication: DIABETES MELLITUS
     Dosage: 3 DF, QD
     Route: 048
     Dates: end: 20201127
  8. HEPARIN SODIUM. [Concomitant]
     Active Substance: HEPARIN SODIUM
  9. TRULICITY [Concomitant]
     Active Substance: DULAGLUTIDE
  10. AMOXICILLIN SODIUM [Suspect]
     Active Substance: AMOXICILLIN SODIUM
     Indication: PROPHYLAXIS
     Dosage: 6 G, QD
     Route: 041
     Dates: start: 20201118, end: 20201126
  11. TIMOLOL. [Concomitant]
     Active Substance: TIMOLOL
  12. BRIMONIDINE [Concomitant]
     Active Substance: BRIMONIDINE TARTRATE
  13. INSULIN GLARGINE [Suspect]
     Active Substance: INSULIN GLARGINE
     Indication: DIABETES MELLITUS
     Dosage: 18 IU, QD
     Route: 058
     Dates: end: 20201127
  14. POTASSIUM CHLORIDE. [Suspect]
     Active Substance: POTASSIUM CHLORIDE
     Indication: HYPOKALAEMIA
     Dosage: 3 DF, QD
     Route: 048
     Dates: start: 20201117, end: 20201127
  15. ORBENINE [Suspect]
     Active Substance: CLOXACILLIN SODIUM
     Indication: PROPHYLAXIS
     Dosage: 6 G, QD
     Route: 042
     Dates: start: 20201118, end: 20201126
  16. LEVOTHYROX [Concomitant]
     Active Substance: LEVOTHYROXINE
  17. FUROSEMIDE. [Suspect]
     Active Substance: FUROSEMIDE
     Indication: HYPERTENSION
     Dosage: 125 UG, QD
     Route: 048
     Dates: end: 20201129
  18. LETROZOLE. [Suspect]
     Active Substance: LETROZOLE
     Indication: BREAST CANCER
     Dosage: 2.5 MG, QD
     Route: 048
     Dates: end: 20201127
  19. BISOPROLOL HEMIFUMARATE [Suspect]
     Active Substance: BISOPROLOL FUMARATE
     Indication: HYPERTENSION
     Dosage: 0.75 DF, QD
     Route: 048
     Dates: end: 20201127

REACTIONS (1)
  - Acute kidney injury [Recovering/Resolving]

NARRATIVE: CASE EVENT DATE: 20201123
